FAERS Safety Report 6867389-5 (Version None)
Quarter: 2010Q3

REPORT INFORMATION
  Report Type: 
  Country: None (occurrence: None)
  Receive Date: 20100722
  Receipt Date: 20100715
  Transmission Date: 20110219
  Serious: Yes (Other)
  Sender: FDA-Public Use
  Company Number: US-SANOFI-AVENTIS-2010SA041630

PATIENT
  Age: 82 Year
  Sex: Female

DRUGS (3)
  1. LANTUS [Suspect]
     Dosage: DOSE:32 UNIT(S)
     Route: 058
     Dates: start: 20000101
  2. SOLOSTAR [Suspect]
     Dates: start: 20000101
  3. HUMALOG [Concomitant]

REACTIONS (2)
  - BLINDNESS [None]
  - RETINAL SCAR [None]
